FAERS Safety Report 9719965 (Version 2)
Quarter: 2014Q1

REPORT INFORMATION
  Report Type: Spontaneous
  Country: CH (occurrence: CH)
  Receive Date: 20131128
  Receipt Date: 20140307
  Transmission Date: 20141002
  Serious: Yes (Hospitalization, Other)
  Sender: FDA-Public Use
  Company Number: CH-JNJFOC-20131115407

PATIENT
  Age: 32 Year
  Sex: Female

DRUGS (5)
  1. XARELTO [Suspect]
     Indication: EMBOLISM VENOUS
     Route: 048
     Dates: start: 20130416
  2. XARELTO [Suspect]
     Indication: DEEP VEIN THROMBOSIS
     Route: 048
     Dates: start: 20130416
  3. TRITTICO [Concomitant]
     Route: 065
  4. TOPOMAX [Concomitant]
     Route: 065
  5. ETHINYLESTRADIOL W/GESTODENE [Concomitant]
     Indication: ORAL CONTRACEPTION
     Route: 065

REACTIONS (1)
  - Pulmonary embolism [Recovered/Resolved]
